FAERS Safety Report 8155670-1 (Version None)
Quarter: 2012Q1

REPORT INFORMATION
  Report Type: 
  Country: None (occurrence: None)
  Receive Date: 20120222
  Receipt Date: 20120217
  Transmission Date: 20120608
  Serious: No
  Sender: FDA-Public Use
  Company Number: US-PFIZER INC-2012040920

PATIENT
  Sex: Male

DRUGS (12)
  1. BENAZEPRIL [Concomitant]
  2. METFORMIN [Concomitant]
  3. SIMVASTATIN [Concomitant]
  4. AMIODARONE HCL [Suspect]
     Dosage: UNK
  5. KLOR-CON [Concomitant]
  6. PLAVIX [Concomitant]
  7. LASIX [Concomitant]
  8. CARVEDILOL [Concomitant]
  9. FINASTERIDE [Concomitant]
  10. ASPIRIN [Concomitant]
  11. DIGOXIN [Concomitant]
  12. COUMADIN [Concomitant]

REACTIONS (1)
  - DRUG INTOLERANCE [None]
